FAERS Safety Report 9643517 (Version 1)
Quarter: 2013Q4

REPORT INFORMATION
  Report Type: Spontaneous
  Country: AT (occurrence: AT)
  Receive Date: 20131024
  Receipt Date: 20131024
  Transmission Date: 20140711
  Serious: Yes (Death)
  Sender: FDA-Public Use
  Company Number: AT-PFIZER INC-2013302645

PATIENT
  Age: 80 Year
  Sex: Male
  Weight: 72 kg

DRUGS (5)
  1. SORTIS [Suspect]
     Indication: ACUTE CORONARY SYNDROME
     Dosage: 80 MG, UNK
     Dates: start: 20130805, end: 20131010
  2. SORTIS [Suspect]
     Indication: ACUTE MYOCARDIAL INFARCTION
  3. SORTIS [Suspect]
     Indication: PERCUTANEOUS CORONARY INTERVENTION
  4. THROMBO ASS [Concomitant]
     Dosage: 100 MG, UNK
     Dates: start: 20130805
  5. BRILIQUE [Concomitant]
     Dosage: 90 MG, 2X/DAY
     Dates: start: 20130805

REACTIONS (3)
  - Rhabdomyolysis [Fatal]
  - Acute hepatic failure [Fatal]
  - Renal failure acute [Fatal]
